FAERS Safety Report 22024816 (Version 1)
Quarter: 2023Q1

REPORT INFORMATION
  Report Type: Spontaneous
  Country: US (occurrence: None)
  Receive Date: 20230223
  Receipt Date: 20230223
  Transmission Date: 20230418
  Serious: No
  Sender: FDA-Public Use
  Company Number: US-ROCHE-3055542

PATIENT
  Sex: Male

DRUGS (1)
  1. XOLAIR [Suspect]
     Active Substance: OMALIZUMAB
     Indication: Product used for unknown indication
     Dosage: LAST DOSE OF XOLAIR THAT WAS ADMINISTERED TO HIM ON MARCH 8,2022
     Route: 065

REACTIONS (6)
  - Cough [Unknown]
  - Malaise [Unknown]
  - Headache [Unknown]
  - Asthma [Unknown]
  - Herpes zoster [Unknown]
  - Food allergy [Unknown]
